FAERS Safety Report 21398385 (Version 2)
Quarter: 2022Q4

REPORT INFORMATION
  Report Type: Spontaneous
  Country: US (occurrence: US)
  Receive Date: 20220930
  Receipt Date: 20221014
  Transmission Date: 20230112
  Serious: Yes (Other)
  Sender: FDA-Public Use
  Company Number: US-009507513-2209USA009414

PATIENT
  Age: 59 Year
  Sex: Female

DRUGS (1)
  1. VERQUVO [Suspect]
     Active Substance: VERICIGUAT
     Route: 048

REACTIONS (2)
  - Cardiomyopathy [Unknown]
  - Ventricular extrasystoles [Unknown]
